FAERS Safety Report 8433811-6 (Version None)
Quarter: 2012Q2

REPORT INFORMATION
  Report Type: 
  Country: None (occurrence: None)
  Receive Date: 20120613
  Receipt Date: 20120608
  Transmission Date: 20120825
  Serious: Yes (Other)
  Sender: FDA-Public Use
  Company Number: US-PFIZER INC-2012140156

PATIENT

DRUGS (2)
  1. DIFLUCAN [Suspect]
     Dosage: UNK
  2. ACCURETIC [Suspect]
     Dosage: UNK

REACTIONS (1)
  - EYE DISORDER [None]
